FAERS Safety Report 24013993 (Version 2)
Quarter: 2024Q3

REPORT INFORMATION
  Report Type: Report from Study
  Country: CA (occurrence: CA)
  Receive Date: 20240626
  Receipt Date: 20240708
  Transmission Date: 20241017
  Serious: Yes (Other)
  Sender: ABBVIE
  Company Number: CA-ABBVIE-5808720

PATIENT
  Sex: Female

DRUGS (5)
  1. RINVOQ [Suspect]
     Active Substance: UPADACITINIB
     Indication: Rheumatoid arthritis
     Dosage: 2 MONTHS + 2 WEEKS IN 2020
     Route: 048
     Dates: start: 20200409, end: 20200424
  2. RINVOQ [Suspect]
     Active Substance: UPADACITINIB
     Indication: Rheumatoid arthritis
     Dosage: 2 MONTHS + 2 WEEKS IN 2020
     Route: 048
     Dates: start: 20190819, end: 20191216
  3. METHOTREXATE [Concomitant]
     Active Substance: METHOTREXATE
     Indication: Product used for unknown indication
  4. HYDROXYCHLOROQUINE [Concomitant]
     Active Substance: HYDROXYCHLOROQUINE
     Indication: Product used for unknown indication
  5. PLAQUENIL [Concomitant]
     Active Substance: HYDROXYCHLOROQUINE SULFATE
     Indication: Product used for unknown indication

REACTIONS (13)
  - Disability [Unknown]
  - Irritable bowel syndrome [Unknown]
  - Fall [Unknown]
  - Fatigue [Unknown]
  - Fatigue [Recovered/Resolved]
  - Pain [Recovered/Resolved]
  - Dizziness [Unknown]
  - Respiratory disorder [Recovered/Resolved]
  - Condition aggravated [Unknown]
  - Migraine [Unknown]
  - Adverse drug reaction [Unknown]
  - Pain [Recovering/Resolving]
  - Unevaluable event [Unknown]

NARRATIVE: CASE EVENT DATE: 20190101
